FAERS Safety Report 5338849-3 (Version None)
Quarter: 2007Q2

REPORT INFORMATION
  Report Type: 
  Country: None (occurrence: None)
  Receive Date: 20070530
  Receipt Date: 20070518
  Transmission Date: 20071010
  Serious: Yes (Other)
  Sender: FDA-Public Use
  Company Number: IT-ELI_LILLY_AND_COMPANY-IT200704005091

PATIENT
  Age: 44 Year
  Sex: Female

DRUGS (2)
  1. DULOXETINE HYDROCHLORIDE [Suspect]
     Indication: DEPRESSION
     Dosage: 60 MG, DAILY (1/D)
     Route: 048
     Dates: start: 20060501, end: 20070413
  2. DELORAZEPAM [Concomitant]
     Dates: start: 20060301

REACTIONS (2)
  - HYPOTHYROIDISM [None]
  - WEIGHT INCREASED [None]
